FAERS Safety Report 20369172 (Version 2)
Quarter: 2022Q1

REPORT INFORMATION
  Report Type: Spontaneous
  Country: EG (occurrence: EG)
  Receive Date: 20220124
  Receipt Date: 20220204
  Transmission Date: 20220423
  Serious: Yes (Death, Hospitalization, Other)
  Sender: FDA-Public Use
  Company Number: EG-SA-SAC20220111000296

PATIENT
  Age: 8 Month
  Sex: Male
  Weight: 6 kg

DRUGS (6)
  1. MYOZYME [Suspect]
     Active Substance: ALGLUCOSIDASE ALFA
     Indication: Glycogen storage disease type II
     Dosage: 20 MG/KG, QOW
     Route: 042
     Dates: start: 20211130, end: 20211228
  2. DOPAMINE [Concomitant]
     Active Substance: DOPAMINE HYDROCHLORIDE
  3. DOBUTAMINE [Concomitant]
     Active Substance: DOBUTAMINE HYDROCHLORIDE
  4. COLISTIN [Concomitant]
     Active Substance: COLISTIN
  5. ITRACONAZOLE [Concomitant]
     Active Substance: ITRACONAZOLE
  6. IMIPENEM [Concomitant]
     Active Substance: IMIPENEM

REACTIONS (2)
  - Pneumothorax [Fatal]
  - Subcutaneous emphysema [Fatal]

NARRATIVE: CASE EVENT DATE: 20220104
